FAERS Safety Report 8242234-4 (Version None)
Quarter: 2012Q1

REPORT INFORMATION
  Report Type: 
  Country: None (occurrence: None)
  Receive Date: 20120329
  Receipt Date: 20120319
  Transmission Date: 20120608
  Serious: Yes (Hospitalization)
  Sender: FDA-Public Use
  Company Number: US-SANOFI-AVENTIS-2012SA019229

PATIENT
  Sex: Male

DRUGS (11)
  1. METOPROLOL SUCCINATE [Concomitant]
     Dates: start: 20120101
  2. PEPCID [Concomitant]
     Dates: start: 20120101
  3. GLIMEPIRIDE [Concomitant]
  4. LANTUS [Suspect]
     Indication: DIABETES MELLITUS
     Dosage: 40 UNITS IN THE AM AND 50 UNITS IN THE PM
     Route: 058
     Dates: start: 20070101
  5. ASPIRIN [Concomitant]
     Dates: start: 20120101
  6. HYDRALAZINE HCL [Concomitant]
     Dates: start: 20120101
  7. NORVASC [Concomitant]
     Dates: start: 20120101
  8. ZOCOR [Concomitant]
     Dates: start: 20120101
  9. LISINOPRIL [Concomitant]
     Dates: start: 20120101
  10. FUROSEMIDE [Concomitant]
     Dates: start: 20120101
  11. ALLOPURINOL [Concomitant]
     Dates: start: 20120101

REACTIONS (2)
  - BLOOD GLUCOSE INCREASED [None]
  - CARDIAC FAILURE [None]
